FAERS Safety Report 21380724 (Version 1)
Quarter: 2022Q3

REPORT INFORMATION
  Report Type: Spontaneous
  Country: DE (occurrence: DE)
  Receive Date: 20220927
  Receipt Date: 20220927
  Transmission Date: 20221027
  Serious: Yes (Hospitalization)
  Sender: FDA-Public Use
  Company Number: DE-ADRED-06739-03

PATIENT
  Age: 84 Year
  Sex: Male
  Weight: 77 kg

DRUGS (13)
  1. RAMIPRIL [Suspect]
     Active Substance: RAMIPRIL
     Indication: Product used for unknown indication
     Dosage: 2.5 MG, 1-0-0-0, TABLETTEN (2.5 MG, 1-0-0, TABLETS)
     Route: 048
  2. LENALIDOMIDE [Suspect]
     Active Substance: LENALIDOMIDE
     Indication: Product used for unknown indication
     Dosage: 25 MG, 0-1-0-0, KAPSELN (25 MG, 0-1-0-0, CAPSULES)
     Route: 048
  3. ALLOPURINOL [Suspect]
     Active Substance: ALLOPURINOL
     Indication: Product used for unknown indication
     Dosage: 300 MG, 0-0.5-0-0, TABLETTEN (300 MG, 0-0.5-0-0, TABLETS)
     Route: 048
  4. TAMSULOSIN [Concomitant]
     Active Substance: TAMSULOSIN
     Indication: Product used for unknown indication
     Dosage: 0.4 MG, 1-0-0-0, RETARD-TABLETTEN (0.4 MG, 1-0-0, DELAYED-RELEASE TABLETS)
     Route: 048
  5. ATENOLOL [Concomitant]
     Active Substance: ATENOLOL
     Indication: Product used for unknown indication
     Dosage: 50 MG, 0.5-0-0.5-0, TABLETTEN (50 MG, 0,5-0-0,5-0, TABLETTEN)
     Route: 048
  6. AMITRIPTYLINE [Concomitant]
     Active Substance: AMITRIPTYLINE
     Indication: Product used for unknown indication
     Dosage: 10 MG, 1-0-0-0, TABLETTEN (10 MG, 1-0-0, TABLETS)
     Route: 048
  7. AMITRIPTYLINE [Concomitant]
     Active Substance: AMITRIPTYLINE
     Dosage: 50 MG, 0-0-1-0, TABLETTEN
     Route: 048
  8. ALBUTEROL [Concomitant]
     Active Substance: ALBUTEROL
     Indication: Product used for unknown indication
     Dosage: 0.1 MG, BEDARF, DOSIERAEROSOL(0.1 MG, DEMAND, METERED DOSE INHALER)
  9. ASPIRIN [Concomitant]
     Active Substance: ASPIRIN
     Indication: Product used for unknown indication
     Dosage: 100 MG, 0-1-0-0, TABLETTEN (100 MG, 0-1-0-0, TABLETS)
     Route: 048
  10. POTASSIUM IODIDE [Concomitant]
     Active Substance: POTASSIUM IODIDE
     Indication: Product used for unknown indication
     Dosage: 131 MICROGRAM 0-1-0-0, TABLETTEN (131 MICROGRAM, 0-1-0-0, TABLETS)
     Route: 048
  11. SIMVASTATIN [Concomitant]
     Active Substance: SIMVASTATIN
     Indication: Product used for unknown indication
     Dosage: 40 MG, 0-0-1-0, TABLETTEN (40 MG, 0-0-1-0, TABLETS)
     Route: 048
  12. DEXAMETHASONE [Concomitant]
     Active Substance: DEXAMETHASONE
     Indication: Product used for unknown indication
     Dosage: 33.23 MG, NACH SCHEMA, INJEKTIONS-/INFUSIONSL?SUNG (33.23 MG, BY REGIMEN, SOLUTION FOR INJECTION/INF
     Route: 042
  13. Eisen(II) [Concomitant]
     Indication: Product used for unknown indication
     Dosage: 50 MG, 1-1-1-0, RETARD-KAPSELN (50 MG, 1-1-0-0, DELAYED-RELEASE CAPSULES)
     Route: 048

REACTIONS (8)
  - Dysuria [Unknown]
  - Muscular weakness [Unknown]
  - General physical health deterioration [Unknown]
  - Hypokalaemia [Unknown]
  - Fatigue [Unknown]
  - Acute kidney injury [Unknown]
  - Renal impairment [Unknown]
  - Product prescribing error [Unknown]
